FAERS Safety Report 10599602 (Version 3)
Quarter: 2015Q1

REPORT INFORMATION
  Report Type: Spontaneous
  Country: US (occurrence: US)
  Receive Date: 20141121
  Receipt Date: 20150205
  Transmission Date: 20150720
  Serious: Yes (Other)
  Sender: FDA-Public Use
  Company Number: US-FRI-1000018862

PATIENT
  Age: 65 Year
  Sex: Female

DRUGS (8)
  1. ROCALTROL [Concomitant]
     Active Substance: CALCITRIOL
     Indication: PARATHYROIDECTOMY
     Route: 048
  2. VASOTEC [Concomitant]
     Active Substance: ENALAPRIL MALEATE
     Indication: HYPERTENSION
     Dosage: 15MG
     Route: 048
  3. METFORMIN [Concomitant]
     Active Substance: METFORMIN HYDROCHLORIDE
     Indication: GLUCOSE TOLERANCE IMPAIRED
  4. ARMOUR THYROID [Suspect]
     Active Substance: THYROID, PORCINE\THYROID, UNSPECIFIED
     Indication: THYROID HORMONE REPLACEMENT THERAPY
     Dosage: 75 MG
     Route: 048
     Dates: start: 2009, end: 201207
  5. ACIPHEX [Concomitant]
     Active Substance: RABEPRAZOLE SODIUM
     Indication: GASTROOESOPHAGEAL REFLUX DISEASE
     Dosage: AS NEEDED
  6. BABY ASPIRIN [Concomitant]
     Active Substance: ASPIRIN
     Dosage: 81 MG
  7. ARMOUR THYROID [Suspect]
     Active Substance: THYROID, PORCINE\THYROID, UNSPECIFIED
     Indication: THYROID HORMONE REPLACEMENT THERAPY
     Dosage: 90 MG
     Route: 048
     Dates: start: 201207
  8. ARMOUR THYROID [Suspect]
     Active Substance: THYROID, PORCINE\THYROID, UNSPECIFIED
     Dosage: 75 MG
     Route: 048

REACTIONS (38)
  - Thyroid function test abnormal [Unknown]
  - Thyroxine decreased [Not Recovered/Not Resolved]
  - Headache [Not Recovered/Not Resolved]
  - Blood glucose increased [Unknown]
  - Sensation of foreign body [Unknown]
  - Fatigue [Unknown]
  - Alopecia [Unknown]
  - Tri-iodothyronine decreased [Not Recovered/Not Resolved]
  - Blood thyroid stimulating hormone increased [Not Recovered/Not Resolved]
  - Dry skin [Unknown]
  - Hormone level abnormal [Unknown]
  - Lethargy [Unknown]
  - Paraesthesia [Unknown]
  - Hair texture abnormal [Unknown]
  - Insomnia [Unknown]
  - Feeling jittery [Unknown]
  - Nausea [Unknown]
  - Temperature intolerance [Unknown]
  - Oropharyngeal pain [Not Recovered/Not Resolved]
  - Sinusitis [Not Recovered/Not Resolved]
  - Hypoaesthesia [Unknown]
  - Amnesia [Unknown]
  - Dyspnoea [Unknown]
  - Blood pressure increased [Unknown]
  - Weight increased [Unknown]
  - Drug ineffective [Unknown]
  - Paraesthesia oral [Unknown]
  - Irritability [Unknown]
  - Constipation [Unknown]
  - Ocular discomfort [Unknown]
  - Heart rate increased [Unknown]
  - Pruritus [Unknown]
  - Mood altered [Unknown]
  - Tremor [Unknown]
  - Thyroid function test abnormal [Unknown]
  - Abdominal pain upper [Unknown]
  - Increased appetite [Unknown]
  - Blood thyroid stimulating hormone abnormal [Not Recovered/Not Resolved]

NARRATIVE: CASE EVENT DATE: 2009
